FAERS Safety Report 5131508-1 (Version None)
Quarter: 2006Q4

REPORT INFORMATION
  Report Type: 
  Country: None (occurrence: None)
  Receive Date: 20061020
  Receipt Date: 20061011
  Transmission Date: 20070319
  Serious: Yes (Other)
  Sender: FDA-Public Use
  Company Number: US-SANOFI-SYNTHELABO-A03200606216

PATIENT
  Sex: Male

DRUGS (3)
  1. AMBIEN [Suspect]
     Indication: INSOMNIA
     Route: 048
     Dates: start: 20061010, end: 20061010
  2. PREVACID [Concomitant]
     Dosage: UNK
     Route: 048
  3. WELLBUTRIN [Concomitant]
     Dosage: UNK
     Route: 048

REACTIONS (1)
  - ROAD TRAFFIC ACCIDENT [None]
